FAERS Safety Report 5795294-4 (Version None)
Quarter: 2008Q2

REPORT INFORMATION
  Report Type: 
  Country: None (occurrence: None)
  Receive Date: 20080626
  Receipt Date: 20080618
  Transmission Date: 20081010
  Serious: Yes (Hospitalization)
  Sender: FDA-Public Use
  Company Number: 163-20785-08042077

PATIENT
  Age: 79 Year
  Sex: Male

DRUGS (9)
  1. THALOMID [Suspect]
     Indication: MULTIPLE MYELOMA
     Dosage: 100 MG, 2 IN 1 D, ORAL, 200-150MG, DAILY, ORAL
     Route: 048
     Dates: start: 20080214, end: 20080424
  2. THALOMID [Suspect]
     Indication: MULTIPLE MYELOMA
     Dosage: 100 MG, 2 IN 1 D, ORAL, 200-150MG, DAILY, ORAL
     Route: 048
     Dates: start: 20080429
  3. ARIXTRA (FONDPARINUX SODIUM) [Concomitant]
  4. DECADRON [Concomitant]
  5. DETROL [Concomitant]
  6. INSULIN (INSULIN) [Concomitant]
  7. LIPITOR [Concomitant]
  8. ATROVENT [Concomitant]
  9. ALBUTEROL [Concomitant]

REACTIONS (2)
  - CHRONIC OBSTRUCTIVE PULMONARY DISEASE [None]
  - TROPONIN INCREASED [None]
